FAERS Safety Report 7306560-5 (Version None)
Quarter: 2011Q1

REPORT INFORMATION
  Report Type: 
  Country: None (occurrence: None)
  Receive Date: 20110119
  Receipt Date: 20100714
  Transmission Date: 20110831
  Serious: Yes (Other)
  Sender: FDA-Public Use
  Company Number: A-NJ2010-38200

PATIENT
  Age: 86 Year
  Sex: Female

DRUGS (10)
  1. TRACLEER [Suspect]
     Indication: PULMONARY ARTERIAL HYPERTENSION
     Dosage: 62.5 MG, BID, ORAL, 125 MG, BID, ORAL
     Route: 048
     Dates: start: 20100113, end: 20100512
  2. TRACLEER [Suspect]
     Indication: PULMONARY ARTERIAL HYPERTENSION
     Dosage: 62.5 MG, BID, ORAL, 125 MG, BID, ORAL
     Route: 048
     Dates: start: 20100513, end: 20100709
  3. OXYGEN (OXYGEN) [Concomitant]
  4. TUSSIONEX PENNKINETIC (CHLORPHENAMINE, HYDROCODONE) [Concomitant]
  5. PRILOSEC (OMEPRAZOLE) [Concomitant]
  6. BENICAR [Concomitant]
  7. FLUTICASONE PROPIONATE [Concomitant]
  8. ADVAIR DISKUS 100/50 [Concomitant]
  9. COMBIVENT (SALBUTAMOL) [Concomitant]
  10. LASIX [Concomitant]

REACTIONS (6)
  - DYSPNOEA [None]
  - HAEMATOCRIT DECREASED [None]
  - HAEMOGLOBIN DECREASED [None]
  - OEDEMA PERIPHERAL [None]
  - RED BLOOD CELL COUNT DECREASED [None]
  - ANAEMIA [None]
